FAERS Safety Report 23665779 (Version 1)
Quarter: 2024Q1

REPORT INFORMATION
  Report Type: Report from Study
  Country: US (occurrence: US)
  Receive Date: 20240323
  Receipt Date: 20240323
  Transmission Date: 20240410
  Serious: Yes (Other)
  Sender: FDA-Public Use
  Company Number: US-002147023-NVSC2024US043510

PATIENT
  Sex: Male

DRUGS (1)
  1. LEQVIO [Suspect]
     Active Substance: INCLISIRAN SODIUM
     Indication: Product used for unknown indication
     Dosage: UNK
     Route: 058

REACTIONS (7)
  - Neuropathy peripheral [Unknown]
  - Arthropathy [Unknown]
  - Muscular weakness [Unknown]
  - Myopathy [Unknown]
  - Cognitive disorder [Unknown]
  - Spinal stenosis [Unknown]
  - Low density lipoprotein decreased [Unknown]
